FAERS Safety Report 5092187-5 (Version None)
Quarter: 2006Q3

REPORT INFORMATION
  Report Type: 
  Country: None (occurrence: None)
  Receive Date: 20060824
  Receipt Date: 20060814
  Transmission Date: 20061208
  Serious: Yes (Other)
  Sender: FDA-Public Use
  Company Number: 228755

PATIENT

DRUGS (1)
  1. AVASTIN [Suspect]
     Indication: HAEMANGIOMA OF RETINA

REACTIONS (1)
  - DRUG INEFFECTIVE [None]
